FAERS Safety Report 6131524-7 (Version None)
Quarter: 2009Q1

REPORT INFORMATION
  Report Type: 
  Country: None (occurrence: None)
  Receive Date: 20090325
  Receipt Date: 20081204
  Transmission Date: 20090719
  Serious: Yes (Other)
  Sender: FDA-Public Use
  Company Number: US-BRISTOL-MYERS SQUIBB COMPANY-14341523

PATIENT
  Age: 68 Year
  Sex: Male

DRUGS (5)
  1. ERBITUX [Suspect]
     Indication: MALIGNANT PALATE NEOPLASM
     Dosage: 792 MG
     Route: 042
     Dates: start: 20080915, end: 20080915
  2. COMPAZINE [Suspect]
     Indication: NAUSEA
     Dosage: 6-8 HRS PRN, 30 MINUTES TO ONE HOUR PRIOR TO THE EVENT THAT OCCURED ON 17-SEP-2008.
     Route: 048
     Dates: start: 20080901, end: 20080901
  3. RADIATION THERAPY [Suspect]
  4. BENADRYL [Concomitant]
     Dates: start: 20080915
  5. ALOXI [Concomitant]
     Dates: start: 20080915

REACTIONS (1)
  - ANAPHYLACTIC REACTION [None]
